FAERS Safety Report 6675680-0 (Version None)
Quarter: 2010Q2

REPORT INFORMATION
  Report Type: 
  Country: None (occurrence: None)
  Receive Date: 20100409
  Receipt Date: 20100326
  Transmission Date: 20101027
  Serious: Yes (Other)
  Sender: FDA-Public Use
  Company Number: US-ELI_LILLY_AND_COMPANY-US201004000320

PATIENT
  Age: 70 Year
  Sex: Male
  Weight: 81.633 kg

DRUGS (5)
  1. EFFIENT [Suspect]
     Dosage: 60 MG, UNK
  2. REOPRO [Concomitant]
     Route: 042
  3. ASPIRIN [Concomitant]
  4. PLAVIX [Concomitant]
     Dosage: 75 MG, UNK
  5. PROTON PUMP INHIBITORS [Concomitant]
     Dosage: BID

REACTIONS (1)
  - EROSIVE OESOPHAGITIS [None]
